FAERS Safety Report 7422744-X (Version None)
Quarter: 2011Q2

REPORT INFORMATION
  Report Type: 
  Country: None (occurrence: None)
  Receive Date: 20110419
  Receipt Date: 20110407
  Transmission Date: 20111010
  Serious: Yes (Hospitalization)
  Sender: FDA-Public Use
  Company Number: JP-JNJFOC-20110404308

PATIENT
  Sex: Male

DRUGS (19)
  1. TOPIRAMATE [Suspect]
     Route: 048
  2. PHENOBARBITAL SODIUM 100MG CAP [Concomitant]
     Route: 065
  3. PHENOBARBITAL SRT [Concomitant]
     Route: 048
  4. PHENOBARBITAL SRT [Concomitant]
     Route: 048
  5. TOPIRAMATE [Suspect]
     Route: 048
  6. SELENICA-R [Concomitant]
     Indication: EPILEPSY
     Route: 048
  7. TOPIRAMATE [Suspect]
     Route: 048
  8. TOPIRAMATE [Suspect]
     Route: 048
  9. PHENOBARBITAL SODIUM 100MG CAP [Concomitant]
     Route: 065
  10. PHENOBARBITAL SRT [Concomitant]
     Route: 048
  11. PHENOBARBITAL SODIUM 100MG CAP [Concomitant]
     Route: 065
  12. TOPIRAMATE [Suspect]
     Route: 048
  13. TOPIRAMATE [Suspect]
     Route: 048
  14. EXCEGRAN [Concomitant]
     Indication: EPILEPSY
     Route: 048
  15. TOPIRAMATE [Suspect]
     Indication: EPILEPSY
     Route: 048
  16. LAMICTAL [Concomitant]
     Indication: EPILEPSY
     Route: 048
  17. LAMICTAL [Concomitant]
     Route: 048
  18. SYMMETREL [Concomitant]
     Route: 065
  19. TOPIRAMATE [Suspect]
     Route: 048

REACTIONS (2)
  - STATUS EPILEPTICUS [None]
  - ALTERED STATE OF CONSCIOUSNESS [None]
